FAERS Safety Report 5086529-4 (Version None)
Quarter: 2006Q3

REPORT INFORMATION
  Report Type: 
  Country: None (occurrence: None)
  Receive Date: 20060821
  Receipt Date: 20060821
  Transmission Date: 20061208
  Serious: Yes (Hospitalization, Disabling, Other)
  Sender: FDA-Public Use
  Company Number: None

PATIENT
  Age: 49 Year
  Sex: Female
  Weight: 99.7913 kg

DRUGS (2)
  1. ENBREL [Suspect]
     Indication: ARTHRITIS
     Dosage: 25MG   BIW   SQ
     Route: 058
     Dates: start: 20050601, end: 20060401
  2. ENBREL [Suspect]
     Indication: SYSTEMIC LUPUS ERYTHEMATOSUS
     Dosage: 25MG   BIW   SQ
     Route: 058
     Dates: start: 20050601, end: 20060401

REACTIONS (2)
  - MASS [None]
  - SPINAL CORD DISORDER [None]
